FAERS Safety Report 9795886 (Version 2)
Quarter: 2014Q1

REPORT INFORMATION
  Report Type: Report from Study
  Country: BR (occurrence: BR)
  Receive Date: 20140103
  Receipt Date: 20140304
  Transmission Date: 20141002
  Serious: Yes (Hospitalization, Disabling, Other)
  Sender: FDA-Public Use
  Company Number: BR-BAYER-2013-158374

PATIENT
  Age: 31 Year
  Sex: Female

DRUGS (7)
  1. BETASERON [Suspect]
     Indication: MULTIPLE SCLEROSIS
     Dosage: 1 ML, QOD
     Route: 058
  2. BETASERON [Suspect]
     Indication: MULTIPLE SCLEROSIS
     Dosage: 0.25 ML, QOD
     Route: 058
  3. BETASERON [Suspect]
     Indication: MULTIPLE SCLEROSIS
     Dosage: 0.75 ML, QOD EACH DOSE DURING 4 OR 7 INJECTIONS
     Route: 058
  4. BETASERON [Suspect]
     Indication: MULTIPLE SCLEROSIS
     Dosage: 1 ML, QOD
     Route: 058
  5. DORMONID [Concomitant]
     Indication: SLEEP DISORDER
     Dosage: UNK
     Route: 048
     Dates: start: 2011
  6. CARBAMAZEPINE [Concomitant]
     Indication: SYNCOPE
     Dosage: 15 MG, PRN
     Route: 048
     Dates: start: 2009
  7. CARBAMAZEPINE [Concomitant]
     Indication: HEADACHE

REACTIONS (18)
  - Musculoskeletal disorder [Not Recovered/Not Resolved]
  - Abasia [Not Recovered/Not Resolved]
  - Multiple sclerosis relapse [Not Recovered/Not Resolved]
  - Headache [Not Recovered/Not Resolved]
  - Paraesthesia [Not Recovered/Not Resolved]
  - Respiratory failure [Recovered/Resolved]
  - Pulmonary fibrosis [Not Recovered/Not Resolved]
  - Wound infection [Not Recovered/Not Resolved]
  - Blood glucose abnormal [Not Recovered/Not Resolved]
  - Hypertension [Unknown]
  - Apnoea [Recovered/Resolved]
  - Cough [Recovered/Resolved]
  - Foot deformity [Not Recovered/Not Resolved]
  - Pneumonia [Recovered/Resolved]
  - Urinary tract infection [Not Recovered/Not Resolved]
  - Tremor [Not Recovered/Not Resolved]
  - Vomiting [Not Recovered/Not Resolved]
  - Pyrexia [Not Recovered/Not Resolved]
